FAERS Safety Report 10049590 (Version 1)
Quarter: 2014Q2

REPORT INFORMATION
  Report Type: Report from Study
  Country: BR (occurrence: BR)
  Receive Date: 20140401
  Receipt Date: 20140401
  Transmission Date: 20141212
  Serious: Yes (Hospitalization, Other)
  Sender: FDA-Public Use
  Company Number: PHHY2014BR038528

PATIENT
  Sex: Female
  Weight: 58 kg

DRUGS (3)
  1. ACLASTA [Suspect]
     Indication: OSTEOPOROSIS
     Dosage: UNK, YEARLY
     Route: 042
     Dates: start: 201302
  2. BENERVA [Concomitant]
     Dosage: UNK UKN, ONCE A DAY
     Dates: start: 2012
  3. MILGAMMA [Concomitant]
     Dosage: UNK UKN, ONCE A DAY
     Dates: start: 2012

REACTIONS (2)
  - Pneumonia [Recovering/Resolving]
  - Exostosis [Recovering/Resolving]
